FAERS Safety Report 8975146 (Version 1)
Quarter: 2012Q4

REPORT INFORMATION
  Report Type: 
  Country: US (occurrence: US)
  Receive Date: 20121219
  Receipt Date: 20121219
  Transmission Date: 20130627
  Serious: No
  Sender: FDA-Public Use
  Company Number: US-AMGEN-USASP2012072073

PATIENT
  Age: 62 Year
  Sex: Female
  Weight: 71.66 kg

DRUGS (16)
  1. PROLIA [Suspect]
     Indication: OSTEOPOROSIS POSTMENOPAUSAL
     Dosage: 60 mg, q6mo
     Route: 058
     Dates: start: 201207
  2. CARVEDILOL [Concomitant]
     Dosage: 25 mg, qd
     Route: 048
  3. CELEBREX [Concomitant]
     Dosage: 200 mg, prn
  4. CHANTIX [Concomitant]
     Dosage: 1 mg, bid
     Route: 048
  5. DIAZEPAM [Concomitant]
     Dosage: 5 mg, qd
     Route: 048
  6. DIOVAN [Concomitant]
     Dosage: 160 mg, qd
     Route: 048
  7. DIOVAN [Concomitant]
     Dosage: 320 mg, UNK
     Route: 048
  8. DIOVAN [Concomitant]
     Dosage: 80 mg, UNK
     Route: 048
  9. FLEXERIL                           /00428402/ [Concomitant]
     Dosage: 10 mg, bid
     Route: 048
  10. FOSAMAX [Concomitant]
     Dosage: 70 mg, qwk
     Route: 048
  11. LORAZEPAM [Concomitant]
     Dosage: 0.5 mg, prn
     Route: 048
  12. LYRICA [Concomitant]
     Dosage: 75 mg, bid
     Route: 048
  13. NASONEX [Concomitant]
     Dosage: 50 mug, qd
     Route: 045
  14. PANTOPRAZOL [Concomitant]
     Dosage: 20 mg, qd
     Route: 048
  15. PREMPRO [Concomitant]
     Dosage: UNK UNK, qd
     Route: 048
  16. VALTREX [Concomitant]
     Dosage: 1 g, q12h
     Route: 048

REACTIONS (1)
  - Eczema [Not Recovered/Not Resolved]
